FAERS Safety Report 4809748-8 (Version None)
Quarter: 2005Q4

REPORT INFORMATION
  Report Type: 
  Country: None (occurrence: None)
  Receive Date: 20051021
  Receipt Date: 20051021
  Transmission Date: 20060501
  Serious: No
  Sender: FDA-Public Use
  Company Number: None

PATIENT
  Age: 67 Year
  Sex: Male
  Weight: 84 kg

DRUGS (2)
  1. CARIMUNE [Suspect]
     Indication: HYPOGAMMAGLOBULINAEMIA
     Dosage: 24GM TODAY IV
     Route: 042
     Dates: start: 20051011
  2. CARIMUNE [Suspect]
     Indication: HYPOGAMMAGLOBULINAEMIA
     Dosage: 6 GM TODAY IV
     Route: 042
     Dates: start: 20051011

REACTIONS (3)
  - CHILLS [None]
  - FEELING COLD [None]
  - INFUSION RELATED REACTION [None]
